FAERS Safety Report 9523739 (Version 3)
Quarter: 2013Q4

REPORT INFORMATION
  Report Type: Spontaneous
  Country: JP (occurrence: JP)
  Receive Date: 20130914
  Receipt Date: 20131219
  Transmission Date: 20140711
  Serious: Yes (Hospitalization)
  Sender: FDA-Public Use
  Company Number: JP-BRISTOL-MYERS SQUIBB COMPANY-19346949

PATIENT
  Age: 30 Year
  Sex: Female
  Weight: 57 kg

DRUGS (6)
  1. ABILIFY TABS [Suspect]
     Indication: DEPRESSION
     Route: 048
  2. LEXOTAN [Suspect]
     Dosage: TABLET, 5MG
     Route: 048
  3. TASMOLIN [Concomitant]
     Dosage: TABLET, 1MG
     Route: 048
  4. ANAFRANIL [Concomitant]
     Dosage: TABLET, 25MG
     Route: 048
  5. ZOLOFT [Concomitant]
     Dosage: TABLET, 50MG
     Route: 048
  6. HIRNAMIN [Concomitant]
     Dosage: TABLET, 5MG
     Route: 048

REACTIONS (2)
  - Road traffic accident [Unknown]
  - Depressed level of consciousness [Recovered/Resolved]
